FAERS Safety Report 7647284-4 (Version None)
Quarter: 2011Q3

REPORT INFORMATION
  Report Type: 
  Country: None (occurrence: None)
  Receive Date: 20110801
  Receipt Date: 20110719
  Transmission Date: 20111222
  Serious: Yes (Hospitalization, Other)
  Sender: FDA-Public Use
  Company Number: DE-PFIZER INC-2011011655

PATIENT
  Age: 66 Year
  Sex: Male

DRUGS (8)
  1. LISINOPRIL [Concomitant]
     Dosage: 20 MG, UNK
  2. FELODIPINE [Concomitant]
     Indication: HYPERTENSION
     Dosage: 5 MG, UNK
  3. AMIODARONE HCL [Suspect]
     Indication: ATRIAL FIBRILLATION
     Dosage: UNK
     Dates: start: 20100101, end: 20100101
  4. DRONEDARONE [Suspect]
     Indication: ATRIAL FIBRILLATION
     Dosage: 400 MG, 2X/DAY
     Route: 048
     Dates: start: 20100323, end: 20100923
  5. MARCUMAR [Concomitant]
     Dosage: 3 MG, UNK
  6. ZOCOR [Concomitant]
     Dosage: 20 MG, UNK
  7. FALITHROM [Concomitant]
     Indication: CEREBROVASCULAR ACCIDENT
     Dosage: UNK
  8. BISOPROLOL FUMARATE [Concomitant]
     Dosage: 5 MG, UNK

REACTIONS (1)
  - LUNG DISORDER [None]
